FAERS Safety Report 4604735-7 (Version None)
Quarter: 2005Q1

REPORT INFORMATION
  Report Type: 
  Country: None (occurrence: None)
  Receive Date: 20050224
  Receipt Date: 20050124
  Transmission Date: 20050727
  Serious: No
  Sender: FDA-Public Use
  Company Number: SU-2005-003027

PATIENT
  Age: 68 Year
  Sex: Female

DRUGS (5)
  1. BENICAR [Suspect]
     Indication: HYPERTENSION
     Dosage: 20 MG QD PO
     Route: 048
     Dates: start: 20030409
  2. XALATAN [Concomitant]
  3. PRILOSEC [Concomitant]
  4. CLARINEX [Concomitant]
  5. LIPITOR [Concomitant]

REACTIONS (1)
  - ALOPECIA [None]
